FAERS Safety Report 5815215-5 (Version None)
Quarter: 2008Q3

REPORT INFORMATION
  Report Type: 
  Country: None (occurrence: None)
  Receive Date: 20080718
  Receipt Date: 20080707
  Transmission Date: 20090109
  Serious: Yes (Hospitalization)
  Sender: FDA-Public Use
  Company Number: HK-GENENTECH-264423

PATIENT
  Sex: Male

DRUGS (13)
  1. BLINDED BEVACIZUMAB [Suspect]
     Indication: B-CELL LYMPHOMA
     Dosage: UNK
     Dates: start: 20071008, end: 20080326
  2. CYCLOPHOSPHAMIDE [Suspect]
     Indication: B-CELL LYMPHOMA
     Dosage: UNK
     Dates: start: 20071008, end: 20080326
  3. DOXORUBICIN HCL [Suspect]
     Indication: B-CELL LYMPHOMA
     Dosage: UNK
     Dates: start: 20071008, end: 20080326
  4. BLINDED PLACEBO [Suspect]
     Indication: B-CELL LYMPHOMA
     Dosage: UNK
     Dates: start: 20071008, end: 20080326
  5. PREDNISONE [Suspect]
     Indication: B-CELL LYMPHOMA
     Dosage: UNK
     Dates: start: 20071008, end: 20080326
  6. BLINDED RITUXIMAB [Suspect]
     Indication: B-CELL LYMPHOMA
     Dosage: UNK
     Dates: start: 20071008, end: 20080326
  7. VINCRISTINE [Suspect]
     Indication: B-CELL LYMPHOMA
     Dosage: UNK
     Dates: start: 20071008, end: 20080326
  8. RITUXIMAB [Suspect]
     Indication: B-CELL LYMPHOMA
     Dosage: UNK
     Route: 042
     Dates: start: 20071008
  9. CYCLOPHOSPHAMIDE [Suspect]
     Indication: DIFFUSE LARGE B-CELL LYMPHOMA
     Dosage: UNK
     Dates: start: 20071008
  10. DOXORUBICIN HCL [Suspect]
     Indication: DIFFUSE LARGE B-CELL LYMPHOMA
     Dosage: UNK
     Dates: start: 20071008
  11. PREDNISONE TAB [Suspect]
     Indication: DIFFUSE LARGE B-CELL LYMPHOMA
     Dosage: UNK
     Dates: start: 20071008
  12. VINCRISTINE [Suspect]
     Indication: DIFFUSE LARGE B-CELL LYMPHOMA
     Dosage: UNK
     Dates: start: 20071008
  13. METHOTREXATE [Concomitant]
     Indication: DRUG USE FOR UNKNOWN INDICATION

REACTIONS (1)
  - THROMBOCYTOPENIA [None]
